FAERS Safety Report 4503535-6 (Version None)
Quarter: 2004Q4

REPORT INFORMATION
  Report Type: 
  Country: None (occurrence: None)
  Receive Date: 20041117
  Receipt Date: 20041109
  Transmission Date: 20050328
  Serious: Yes (Hospitalization)
  Sender: FDA-Public Use
  Company Number: FR-BRISTOL-MYERS SQUIBB COMPANY-12759395

PATIENT
  Age: 50 Year
  Sex: Male

DRUGS (1)
  1. CAPTEA [Suspect]
     Indication: ESSENTIAL HYPERTENSION
     Dosage: DOSING = ^EVERYDAY^
     Route: 048
     Dates: start: 20001115, end: 20020915

REACTIONS (1)
  - PSEUDO LYMPHOMA [None]
